FAERS Safety Report 6117458-2 (Version None)
Quarter: 2009Q1

REPORT INFORMATION
  Report Type: 
  Country: None (occurrence: None)
  Receive Date: 20090314
  Receipt Date: 20090119
  Transmission Date: 20090719
  Serious: No
  Sender: FDA-Public Use
  Company Number: US-ABBOTT-09P-163-0498816-00

PATIENT
  Sex: Male
  Weight: 65.83 kg

DRUGS (3)
  1. HUMIRA [Suspect]
     Indication: CROHN'S DISEASE
     Dosage: 2 INJECTION LOADING DOSE
     Dates: start: 20090117, end: 20090117
  2. HUMIRA [Suspect]
     Dosage: 4 INJECTION LOADING DOSE
     Dates: start: 20090103, end: 20090103
  3. HUMIRA [Suspect]
     Route: 058

REACTIONS (3)
  - DRUG DELIVERY SYSTEM MALFUNCTION [None]
  - INCORRECT DOSE ADMINISTERED [None]
  - INJECTION SITE HAEMORRHAGE [None]
